FAERS Safety Report 8487680-9 (Version None)
Quarter: 2012Q3

REPORT INFORMATION
  Report Type: 
  Country: None (occurrence: None)
  Receive Date: 20120705
  Receipt Date: 20120627
  Transmission Date: 20120928
  Serious: No
  Sender: FDA-Public Use
  Company Number: US-JNJFOC-20120700476

PATIENT

DRUGS (2)
  1. INVEGA SUSTENNA [Suspect]
     Indication: PRODUCT USED FOR UNKNOWN INDICATION
     Route: 030
     Dates: start: 20120509
  2. INVEGA SUSTENNA [Suspect]
     Route: 030
     Dates: start: 20120606

REACTIONS (2)
  - DRUG DOSE OMISSION [None]
  - CONDITION AGGRAVATED [None]
